FAERS Safety Report 11748274 (Version 1)
Quarter: 2015Q4

REPORT INFORMATION
  Report Type: Report from Study
  Country: BR (occurrence: BR)
  Receive Date: 20151117
  Receipt Date: 20151117
  Transmission Date: 20160304
  Serious: Yes (Other)
  Sender: FDA-Public Use
  Company Number: PHHY2015BR149277

PATIENT
  Sex: Female

DRUGS (1)
  1. ACLASTA [Suspect]
     Active Substance: ZOLEDRONIC ACID
     Indication: PRODUCT USED FOR UNKNOWN INDICATION
     Route: 065

REACTIONS (14)
  - Upper limb fracture [Unknown]
  - Anaemia [Unknown]
  - Haematemesis [Unknown]
  - Insomnia [Unknown]
  - Osteoporosis [Not Recovered/Not Resolved]
  - Hypoacusis [Unknown]
  - Fatigue [Unknown]
  - Malaise [Unknown]
  - Dizziness [Unknown]
  - Vein rupture [Unknown]
  - Hepatic cirrhosis [Unknown]
  - Gait disturbance [Unknown]
  - Fall [Unknown]
  - Limb injury [Unknown]

NARRATIVE: CASE EVENT DATE: 20150411
